FAERS Safety Report 21572598 (Version 1)
Quarter: 2022Q4

REPORT INFORMATION
  Report Type: Spontaneous
  Country: GB (occurrence: GB)
  Receive Date: 20221109
  Receipt Date: 20221109
  Transmission Date: 20230113
  Serious: Yes (Hospitalization)
  Sender: FDA-Public Use
  Company Number: GB-MYLANLABS-2022M1122754

PATIENT
  Age: 36 Year
  Sex: Female

DRUGS (8)
  1. FENTANYL [Suspect]
     Active Substance: FENTANYL
     Indication: Analgesic therapy
     Dosage: 10 MICROGRAM
     Route: 037
  2. EPINEPHRINE [Suspect]
     Active Substance: EPINEPHRINE
     Indication: Product used for unknown indication
     Dosage: 0.1 MILLIGRAM
     Route: 008
  3. BUPIVACAINE [Suspect]
     Active Substance: BUPIVACAINE
     Indication: Anaesthesia
     Dosage: 5 MILLIGRAM
     Route: 037
  4. OCTREOTIDE [Suspect]
     Active Substance: OCTREOTIDE
     Indication: Vipoma
     Dosage: UNK
     Route: 065
  5. OCTREOTIDE [Suspect]
     Active Substance: OCTREOTIDE
     Indication: Vipoma
     Dosage: 100 MICROGRAM, Q8H
     Route: 058
  6. URSODIOL [Suspect]
     Active Substance: URSODIOL
     Indication: Cholestasis of pregnancy
     Dosage: UNK
     Route: 065
  7. LIDOCAINE [Suspect]
     Active Substance: LIDOCAINE
     Indication: Anaesthesia
     Dosage: 378 MILLIGRAM
     Route: 008
  8. SODIUM BICARBONATE [Suspect]
     Active Substance: SODIUM BICARBONATE
     Indication: Product used for unknown indication
     Dosage: 84 MILLIGRAM
     Route: 008

REACTIONS (4)
  - Hypotension [Unknown]
  - Device placement issue [Unknown]
  - Accidental exposure to product [Unknown]
  - Maternal exposure during pregnancy [Unknown]
